FAERS Safety Report 15342462 (Version 4)
Quarter: 2018Q4

REPORT INFORMATION
  Report Type: Spontaneous
  Country: US (occurrence: US)
  Receive Date: 20180902
  Receipt Date: 20181010
  Transmission Date: 20190204
  Serious: Yes (Hospitalization, Other)
  Sender: FDA-Public Use
  Company Number: US-JNJFOC-20180822924

PATIENT
  Age: 91 Year
  Sex: Male

DRUGS (14)
  1. PREDNISON [Concomitant]
     Active Substance: PREDNISONE
     Dosage: HALF TABLET UNTIL 20-OCT-2018 EVERY OTHER DAY
     Route: 065
     Dates: start: 20180103
  2. CYCLOBENZAPRIN [Concomitant]
     Active Substance: CYCLOBENZAPRINE
     Dosage: AS NECESSARY
     Route: 065
  3. LATANOPROST. [Concomitant]
     Active Substance: LATANOPROST
     Indication: GLAUCOMA
     Dosage: 2.14 YEARS
     Route: 047
  4. ASPIRIN. [Concomitant]
     Active Substance: ASPIRIN
     Indication: ANTICOAGULANT THERAPY
     Dosage: 8 YEARS
     Route: 065
  5. CALCIUM [Concomitant]
     Active Substance: CALCIUM
     Route: 065
  6. TYLENOL [Concomitant]
     Active Substance: ACETAMINOPHEN
     Indication: PAIN
     Route: 065
     Dates: start: 20180904
  7. ATORVASTATIN [Concomitant]
     Active Substance: ATORVASTATIN
     Indication: BLOOD CHOLESTEROL INCREASED
     Dosage: 2.12 YEARS
     Route: 065
  8. LISINOPRIL. [Concomitant]
     Active Substance: LISINOPRIL
     Indication: HYPERTENSION
     Route: 065
  9. VITAMIN D [Concomitant]
     Active Substance: CHOLECALCIFEROL
     Route: 065
  10. ZYTIGA [Suspect]
     Active Substance: ABIRATERONE ACETATE
     Indication: PRODUCT USED FOR UNKNOWN INDICATION
     Route: 048
     Dates: start: 20180301, end: 20180701
  11. LEUPROLIDE ACETATE. [Concomitant]
     Active Substance: LEUPROLIDE ACETATE
     Indication: PROSTATIC SPECIFIC ANTIGEN DECREASED
     Route: 065
     Dates: start: 2004
  12. LORAZEPAN [Concomitant]
     Active Substance: LORAZEPAM
     Dosage: IF NEEDED
     Route: 065
  13. SYNTHROID [Concomitant]
     Active Substance: LEVOTHYROXINE SODIUM
     Indication: THYROID DISORDER
     Dosage: 3.11 YEARS
     Route: 065
  14. LISINOPRIL. [Concomitant]
     Active Substance: LISINOPRIL
     Indication: HYPERTENSION
     Route: 065

REACTIONS (6)
  - Blood pressure increased [Recovering/Resolving]
  - Transient ischaemic attack [Unknown]
  - Laboratory test abnormal [Unknown]
  - Carotid arteriosclerosis [Unknown]
  - Prostatic specific antigen increased [Recovering/Resolving]
  - Left ventricular dysfunction [Unknown]

NARRATIVE: CASE EVENT DATE: 2018
